FAERS Safety Report 6451612-5 (Version None)
Quarter: 2009Q4

REPORT INFORMATION
  Report Type: 
  Country: None (occurrence: None)
  Receive Date: 20091123
  Receipt Date: 20091112
  Transmission Date: 20100525
  Serious: Yes (Hospitalization, Other)
  Sender: FDA-Public Use
  Company Number: PHHO2009DE13042

PATIENT
  Sex: Male
  Weight: 70 kg

DRUGS (2)
  1. RAD 666 RAD+TAB [Suspect]
     Indication: LIVER TRANSPLANT
     Dosage: 5MG/DAY
     Route: 048
     Dates: start: 20090925
  2. TACROLIMUS COMP-TAC+ [Suspect]
     Indication: LIVER TRANSPLANT
     Dosage: UNK
     Route: 048
     Dates: start: 20090825

REACTIONS (4)
  - BILIARY ANASTOMOSIS COMPLICATION [None]
  - CHOLESTASIS [None]
  - HEPATIC ENZYME INCREASED [None]
  - HEPATOCELLULAR INJURY [None]
